FAERS Safety Report 21210699 (Version 4)
Quarter: 2024Q1

REPORT INFORMATION
  Report Type: Report from Study
  Country: US (occurrence: US)
  Receive Date: 20220815
  Receipt Date: 20240219
  Transmission Date: 20240410
  Serious: Yes (Hospitalization)
  Sender: FDA-Public Use
  Company Number: US-ABBVIE-22K-163-4501485-00

PATIENT
  Age: 85 Year
  Sex: Male

DRUGS (6)
  1. VENCLEXTA [Suspect]
     Active Substance: VENETOCLAX
     Indication: Immune system disorder
     Dosage: DAY 1?FORM STRENGTH 50 MG
     Route: 048
  2. VENCLEXTA [Suspect]
     Active Substance: VENETOCLAX
     Indication: Immune system disorder
     Dosage: DAY 2?FORM STRENGTH- 100 MG
     Route: 048
  3. VENCLEXTA [Suspect]
     Active Substance: VENETOCLAX
     Indication: Immune system disorder
     Dosage: (200MG) ON DAYS 3-21 OF EACH CYCLE?FORM STRENGTH- 100 MG
     Route: 048
  4. VENCLEXTA [Suspect]
     Active Substance: VENETOCLAX
     Indication: Immune system disorder
     Dosage: (200MG) ON DAYS 3-21 OF EACH CYCLE
     Route: 048
  5. VENCLEXTA [Suspect]
     Active Substance: VENETOCLAX
     Indication: Immune system disorder
     Dosage: DAY 3-21 AS DIRECTED?FORM STRENGTH- 100 MG
     Route: 048
  6. VENCLEXTA [Suspect]
     Active Substance: VENETOCLAX
     Indication: Immune system disorder
     Dosage: (50MG) ON DAY 1 OF EACH CYCLE, THEN GO TO 100MG TABS?FORM STRENGTH: 50 MG
     Route: 048

REACTIONS (3)
  - Neoplasm malignant [Unknown]
  - Product dispensing error [Unknown]
  - Off label use [Unknown]

NARRATIVE: CASE EVENT DATE: 20240208
